FAERS Safety Report 4827485-0 (Version None)
Quarter: 2005Q4

REPORT INFORMATION
  Report Type: 
  Country: None (occurrence: None)
  Receive Date: 20051114
  Receipt Date: 20050912
  Transmission Date: 20060501
  Serious: Yes (Life-Threatening, Hospitalization)
  Sender: FDA-Public Use
  Company Number: JP-SANOFI-SYNTHELABO-F01200501845

PATIENT
  Sex: Male
  Weight: 58 kg

DRUGS (3)
  1. OXALIPLATIN [Suspect]
     Indication: RECTAL CANCER
     Route: 042
     Dates: start: 20050712, end: 20050726
  2. FLUOROURACIL [Suspect]
     Dosage: 600MG/BODY=377.4MG/M2 IN BOLUS THEN 900MG/BODY=566.0MG/M2 AS CONTINUOUS INFUSION ON DAYS 1 AND 2
     Route: 042
     Dates: start: 20050712, end: 20050727
  3. CALCIUM LEVOFOLINATE [Suspect]
     Route: 042
     Dates: start: 20050712, end: 20050727

REACTIONS (6)
  - DYSPNOEA [None]
  - HAEMOGLOBIN DECREASED [None]
  - LEUKOPENIA [None]
  - NEUTROPENIA [None]
  - SUPRAVENTRICULAR TACHYCARDIA [None]
  - THROMBOCYTOPENIA [None]
